FAERS Safety Report 16987970 (Version 5)
Quarter: 2024Q4

REPORT INFORMATION
  Report Type: Report from Study
  Country: CA (occurrence: None)
  Receive Date: 20191104
  Receipt Date: 20241105
  Transmission Date: 20250115
  Serious: Yes (Other)
  Sender: ORION
  Company Number: CA-ORION CORPORATION ORION PHARMA-TREX2019-5020

PATIENT
  Age: 55 Year
  Sex: Female

DRUGS (28)
  1. METHOTREXATE [Suspect]
     Active Substance: METHOTREXATE
     Indication: Rheumatoid arthritis
  2. ACTEMRA [Suspect]
     Active Substance: TOCILIZUMAB
     Indication: Rheumatoid arthritis
     Dosage: CYCLIC
  3. ACTEMRA [Suspect]
     Active Substance: TOCILIZUMAB
     Dosage: CYCLIC
  4. ACTEMRA [Suspect]
     Active Substance: TOCILIZUMAB
     Dosage: CYCLIC
  5. RITUXAN [Suspect]
     Active Substance: RITUXIMAB
     Indication: Rheumatoid arthritis
  6. RITUXIMAB [Suspect]
     Active Substance: RITUXIMAB
     Indication: Rheumatoid arthritis
  7. RITUXIMAB [Suspect]
     Active Substance: RITUXIMAB
  8. RITUXIMAB [Suspect]
     Active Substance: RITUXIMAB
  9. ACETAMINOPHEN [Concomitant]
     Active Substance: ACETAMINOPHEN
     Indication: Premedication
  10. DIPHENHYDRAMINE HYDROCHLORIDE [Concomitant]
     Active Substance: DIPHENHYDRAMINE HYDROCHLORIDE
     Indication: Premedication
  11. FOLIC ACID [Concomitant]
     Active Substance: FOLIC ACID
  12. MAXALT [Concomitant]
     Active Substance: RIZATRIPTAN BENZOATE
  13. MAXALT [Concomitant]
     Active Substance: RIZATRIPTAN BENZOATE
  14. METHYLPREDNISOLONE [Concomitant]
     Active Substance: METHYLPREDNISOLONE
     Indication: Premedication
  15. NAPROXEN [Concomitant]
     Active Substance: NAPROXEN
  16. NEXIUM [Concomitant]
     Active Substance: ESOMEPRAZOLE MAGNESIUM
  17. PREDNISONE [Concomitant]
     Active Substance: PREDNISONE
  18. PREMARIN [Concomitant]
     Active Substance: ESTROGENS, CONJUGATED
  19. SYNTHROID [Concomitant]
     Active Substance: LEVOTHYROXINE SODIUM
  20. ERGOCALCIFEROL [Concomitant]
     Active Substance: ERGOCALCIFEROL
  21. ESOMEPRAZOLE [Concomitant]
     Active Substance: ESOMEPRAZOLE
  22. LYRICA [Concomitant]
     Active Substance: PREGABALIN
  23. METOCLOPRAMIDE [Concomitant]
     Active Substance: METOCLOPRAMIDE
     Indication: Migraine
  24. REACTINE [Concomitant]
  25. CALCIUM [Concomitant]
     Active Substance: CALCIUM
  26. NASONEX [Concomitant]
     Active Substance: MOMETASONE FUROATE
  27. MELOXICAM [Concomitant]
     Active Substance: MELOXICAM
  28. NAPROSYN [Concomitant]
     Active Substance: NAPROXEN

REACTIONS (22)
  - Drug ineffective [Not Recovered/Not Resolved]
  - Therapy partial responder [Not Recovered/Not Resolved]
  - Product administration error [Not Recovered/Not Resolved]
  - Abdominal pain [Not Recovered/Not Resolved]
  - Arthralgia [Not Recovered/Not Resolved]
  - Blood pressure increased [Not Recovered/Not Resolved]
  - Diverticulitis [Not Recovered/Not Resolved]
  - Feeling hot [Not Recovered/Not Resolved]
  - Haemorrhage [Not Recovered/Not Resolved]
  - Head discomfort [Not Recovered/Not Resolved]
  - Headache [Not Recovered/Not Resolved]
  - Joint swelling [Not Recovered/Not Resolved]
  - Pruritus [Not Recovered/Not Resolved]
  - Rheumatoid arthritis [Not Recovered/Not Resolved]
  - Rheumatoid factor positive [Not Recovered/Not Resolved]
  - Somnolence [Not Recovered/Not Resolved]
  - Blood pressure fluctuation [Not Recovered/Not Resolved]
  - Blood pressure diastolic abnormal [Not Recovered/Not Resolved]
  - Blood pressure systolic increased [Not Recovered/Not Resolved]
  - Anger [Not Recovered/Not Resolved]
  - Stress [Not Recovered/Not Resolved]
  - Tremor [Not Recovered/Not Resolved]
